FAERS Safety Report 16830230 (Version 3)
Quarter: 2020Q4

REPORT INFORMATION
  Report Type: Report from Study
  Country: None (occurrence: US)
  Receive Date: 20190919
  Receipt Date: 20201112
  Transmission Date: 20210113
  Serious: No
  Sender: FDA-Public Use
  Company Number: US-ABBVIE-19K-163-2924901-00

PATIENT
  Sex: Male

DRUGS (7)
  1. IMBRUVICA [Suspect]
     Active Substance: IBRUTINIB
     Route: 048
     Dates: start: 20181015
  2. LEVOTHYROXINE. [Concomitant]
     Active Substance: LEVOTHYROXINE
     Indication: PRODUCT USED FOR UNKNOWN INDICATION
     Dosage: DOSE INCREASED
  3. IMBRUVICA [Suspect]
     Active Substance: IBRUTINIB
     Route: 048
     Dates: start: 20181006
  4. VENCLEXTA [Suspect]
     Active Substance: VENETOCLAX
     Indication: CHRONIC LYMPHOCYTIC LEUKAEMIA
     Dosage: DAILY
     Route: 048
     Dates: start: 20190109
  5. IMBRUVICA [Suspect]
     Active Substance: IBRUTINIB
     Indication: CHRONIC LYMPHOCYTIC LEUKAEMIA
     Route: 048
     Dates: start: 20181016, end: 201907
  6. IMBRUVICA [Suspect]
     Active Substance: IBRUTINIB
     Route: 048
     Dates: start: 20181016
  7. IMBRUVICA [Suspect]
     Active Substance: IBRUTINIB
     Route: 048
     Dates: start: 2019

REACTIONS (8)
  - Fatigue [Unknown]
  - Granuloma skin [Not Recovered/Not Resolved]
  - Hypoaesthesia [Not Recovered/Not Resolved]
  - Contusion [Not Recovered/Not Resolved]
  - Limb discomfort [Unknown]
  - Insomnia [Not Recovered/Not Resolved]
  - Asthenia [Unknown]
  - Neuropathy peripheral [Unknown]
